FAERS Safety Report 8238975-5 (Version None)
Quarter: 2012Q1

REPORT INFORMATION
  Report Type: 
  Country: None (occurrence: None)
  Receive Date: 20120327
  Receipt Date: 20120314
  Transmission Date: 20120608
  Serious: Yes (Hospitalization)
  Sender: FDA-Public Use
  Company Number: PHHO2012US000875

PATIENT
  Sex: Female
  Weight: 136.5 kg

DRUGS (15)
  1. TRIAMCINOLONE ACETONIDE [Suspect]
     Indication: GOUTY ARTHRITIS
     Dosage: UNK
     Route: 058
     Dates: start: 20111101
  2. LASIX [Concomitant]
  3. LYRICA [Concomitant]
  4. STEROIDS NOS [Concomitant]
  5. XANAX [Concomitant]
  6. AUGMENTIN [Concomitant]
  7. LORTAB [Concomitant]
  8. ILARIS [Suspect]
     Indication: GOUTY ARTHRITIS
     Dosage: UNK
     Route: 058
     Dates: start: 20111101
  9. ILARIS [Suspect]
     Dosage: UNK
     Route: 058
     Dates: start: 20111101
  10. BLINDED NO TREATMENT RECEIVED [Suspect]
     Indication: GOUTY ARTHRITIS
     Dosage: UNK
     Route: 058
     Dates: start: 20111101
  11. DIOVAN [Concomitant]
  12. PLACEBO [Suspect]
     Indication: GOUTY ARTHRITIS
     Dosage: UNK
     Route: 058
     Dates: start: 20111101
  13. MOBIC [Concomitant]
  14. ALLOPURINOL [Concomitant]
  15. FLEXERIL [Concomitant]

REACTIONS (3)
  - PYREXIA [None]
  - VIRAL INFECTION [None]
  - HEADACHE [None]
